FAERS Safety Report 19841552 (Version 1)
Quarter: 2021Q3

REPORT INFORMATION
  Report Type: Spontaneous
  Country: FR (occurrence: FR)
  Receive Date: 20210916
  Receipt Date: 20210916
  Transmission Date: 20211014
  Serious: Yes (Hospitalization)
  Sender: FDA-Public Use
  Company Number: FR-PFIZER INC-202101148921

PATIENT
  Age: 18 Year
  Sex: Male
  Weight: 58 kg

DRUGS (7)
  1. EMEND [Concomitant]
     Active Substance: APREPITANT
     Dosage: 80 MG, 1X/DAY
     Route: 048
     Dates: start: 20210720, end: 20210722
  2. IFOSFAMIDE. [Suspect]
     Active Substance: IFOSFAMIDE
     Indication: HODGKIN^S DISEASE NODULAR SCLEROSIS RECURRENT
     Dosage: 3500 MG, 1X/DAY
     Route: 041
     Dates: start: 20210719, end: 20210722
  3. VINORELBINE DITARTRATE [Suspect]
     Active Substance: VINORELBINE TARTRATE
     Indication: HODGKIN^S DISEASE NODULAR SCLEROSIS RECURRENT
     Dosage: 30 MG, CYCLIC
     Route: 041
     Dates: start: 20210719, end: 20210719
  4. BACTRIM [Suspect]
     Active Substance: SULFAMETHOXAZOLE\TRIMETHOPRIM
     Indication: INFECTION PROPHYLAXIS
     Dosage: 800 MG, 3X/WEEK
     Route: 048
     Dates: start: 20200831, end: 20210727
  5. PLITICAN [Concomitant]
     Active Substance: ALIZAPRIDE HYDROCHLORIDE
     Indication: PROPHYLAXIS OF NAUSEA AND VOMITING
     Dosage: 50 MG, 3X/DAY (EVERY 8 HOURS)
     Route: 042
     Dates: start: 20210719, end: 20210723
  6. GEMCITABINE HYDROCHLORIDE. [Suspect]
     Active Substance: GEMCITABINE HYDROCHLORIDE
     Indication: HODGKIN^S DISEASE NODULAR SCLEROSIS RECURRENT
     Dosage: 1400 MG, CYCLIC (4 DAYS)
     Route: 041
     Dates: start: 20210719, end: 20210722
  7. EMEND [Concomitant]
     Active Substance: APREPITANT
     Indication: PROPHYLAXIS OF NAUSEA AND VOMITING
     Dosage: 125 MG
     Route: 048
     Dates: start: 20210719, end: 20210719

REACTIONS (2)
  - Dermatitis [Recovering/Resolving]
  - Off label use [Unknown]

NARRATIVE: CASE EVENT DATE: 20210719
